FAERS Safety Report 20702564 (Version 3)
Quarter: 2022Q3

REPORT INFORMATION
  Report Type: Report from Study
  Country: US (occurrence: US)
  Receive Date: 20220412
  Receipt Date: 20220927
  Transmission Date: 20221027
  Serious: No
  Sender: FDA-Public Use
  Company Number: US-KYOWAKIRIN-2022BKK005102

PATIENT

DRUGS (2)
  1. CRYSVITA [Suspect]
     Active Substance: BUROSUMAB-TWZA
     Indication: Hereditary hypophosphataemic rickets
     Dosage: 70 MG, 1X/4 WEEKS
     Route: 058
     Dates: start: 20210612
  2. CRYSVITA [Suspect]
     Active Substance: BUROSUMAB-TWZA
     Dosage: 70 MG, 1X/4 WEEKS
     Route: 065

REACTIONS (7)
  - Fracture [Recovered/Resolved]
  - Alopecia [Not Recovered/Not Resolved]
  - Insomnia [Not Recovered/Not Resolved]
  - Arthritis [Not Recovered/Not Resolved]
  - Restless legs syndrome [Not Recovered/Not Resolved]
  - Rash [Not Recovered/Not Resolved]
  - Therapeutic response shortened [Not Recovered/Not Resolved]
